FAERS Safety Report 7180708-8 (Version None)
Quarter: 2010Q4

REPORT INFORMATION
  Report Type: 
  Country: None (occurrence: None)
  Receive Date: 20101221
  Receipt Date: 20101123
  Transmission Date: 20110411
  Serious: Yes (Death, Hospitalization)
  Sender: FDA-Public Use
  Company Number: US-BAXTER-2010BH007379

PATIENT
  Age: 84 Year
  Sex: Female

DRUGS (32)
  1. HEPARIN SODIUM INJECTION [Suspect]
     Indication: INTRAVENOUS CATHETER MANAGEMENT
     Route: 042
     Dates: start: 20080222, end: 20080226
  2. HEPARIN SODIUM INJECTION [Suspect]
     Indication: AORTIC VALVE REPLACEMENT
     Route: 042
     Dates: start: 20080222, end: 20080226
  3. HEPARIN SODIUM INJECTION [Suspect]
     Route: 042
     Dates: start: 20080314, end: 20080314
  4. HEPARIN SODIUM INJECTION [Suspect]
     Route: 042
     Dates: start: 20080314, end: 20080314
  5. LOVENOX [Suspect]
     Indication: PRODUCT USED FOR UNKNOWN INDICATION
     Route: 058
     Dates: start: 20080219, end: 20080223
  6. WARFARIN [Suspect]
     Indication: PRODUCT USED FOR UNKNOWN INDICATION
     Route: 048
     Dates: start: 20080219, end: 20080224
  7. ATENOLOL [Concomitant]
     Indication: PRODUCT USED FOR UNKNOWN INDICATION
     Route: 065
  8. SINGULAIR [Concomitant]
     Indication: PRODUCT USED FOR UNKNOWN INDICATION
     Route: 065
  9. ASPIRIN [Concomitant]
     Indication: PRODUCT USED FOR UNKNOWN INDICATION
     Route: 065
  10. ISOSORBIDE DINITRATE [Concomitant]
     Indication: PRODUCT USED FOR UNKNOWN INDICATION
     Route: 048
  11. ZOLOFT [Concomitant]
     Indication: PRODUCT USED FOR UNKNOWN INDICATION
     Route: 065
  12. PREDNISONE [Concomitant]
     Indication: PRODUCT USED FOR UNKNOWN INDICATION
     Route: 065
  13. CARDIZEM [Concomitant]
     Indication: PRODUCT USED FOR UNKNOWN INDICATION
     Route: 065
  14. PRILOSEC [Concomitant]
     Indication: PRODUCT USED FOR UNKNOWN INDICATION
     Route: 065
  15. VENTOLIN [Concomitant]
     Indication: PRODUCT USED FOR UNKNOWN INDICATION
     Route: 055
  16. FLONASE [Concomitant]
     Indication: PRODUCT USED FOR UNKNOWN INDICATION
     Route: 055
  17. MULTI-VITAMINS [Concomitant]
     Indication: PRODUCT USED FOR UNKNOWN INDICATION
     Route: 065
  18. CALCIUM WITH VITAMIN D [Concomitant]
     Indication: PRODUCT USED FOR UNKNOWN INDICATION
     Route: 065
  19. ACTONEL [Concomitant]
     Indication: PRODUCT USED FOR UNKNOWN INDICATION
     Route: 065
  20. PROVENTIL SOLUTION [Concomitant]
     Indication: PRODUCT USED FOR UNKNOWN INDICATION
     Route: 055
  21. LEVAQUIN [Concomitant]
     Indication: PRODUCT USED FOR UNKNOWN INDICATION
     Route: 065
  22. DEMEROL [Concomitant]
     Indication: PRODUCT USED FOR UNKNOWN INDICATION
     Route: 065
  23. RESTORIL [Concomitant]
     Indication: PRODUCT USED FOR UNKNOWN INDICATION
     Route: 065
  24. COLACE [Concomitant]
     Indication: PRODUCT USED FOR UNKNOWN INDICATION
     Route: 065
  25. ENOXAPARIN SODIUM [Concomitant]
     Indication: PRODUCT USED FOR UNKNOWN INDICATION
     Route: 065
  26. PROPYLTHIOURACIL [Concomitant]
     Indication: PRODUCT USED FOR UNKNOWN INDICATION
     Route: 048
  27. DIGOXIN [Concomitant]
     Indication: PRODUCT USED FOR UNKNOWN INDICATION
     Route: 048
  28. WARFARIN [Concomitant]
     Route: 065
  29. FUROSEMIDE [Concomitant]
     Indication: PRODUCT USED FOR UNKNOWN INDICATION
     Route: 065
  30. POTASSIUM CHLORIDE [Concomitant]
     Indication: PRODUCT USED FOR UNKNOWN INDICATION
     Route: 065
  31. ACETAMINOPHEN [Concomitant]
     Indication: PRODUCT USED FOR UNKNOWN INDICATION
     Route: 065
  32. PREDNISONE [Concomitant]
     Route: 065

REACTIONS (24)
  - ABDOMINAL DISTENSION [None]
  - AORTIC STENOSIS [None]
  - ARTERIOSCLEROSIS [None]
  - ATELECTASIS [None]
  - ATRIAL FIBRILLATION [None]
  - CARDIAC FAILURE CONGESTIVE [None]
  - CEREBROVASCULAR ACCIDENT [None]
  - DEEP VEIN THROMBOSIS [None]
  - DIARRHOEA [None]
  - GASTROINTESTINAL HAEMORRHAGE [None]
  - HAEMATURIA [None]
  - HAEMORRHAGE [None]
  - HAEMOTHORAX [None]
  - INTESTINAL ISCHAEMIA [None]
  - INTRA-ABDOMINAL HAEMATOMA [None]
  - LETHARGY [None]
  - METABOLIC ENCEPHALOPATHY [None]
  - MULTI-ORGAN FAILURE [None]
  - PANCREATITIS [None]
  - PNEUMONIA [None]
  - RENAL FAILURE [None]
  - THROMBOCYTOPENIA [None]
  - THROMBOSIS [None]
  - URINARY TRACT INFECTION [None]
